FAERS Safety Report 22337606 (Version 1)
Quarter: 2023Q2

REPORT INFORMATION
  Report Type: Spontaneous
  Country: SE (occurrence: SE)
  Receive Date: 20230518
  Receipt Date: 20230518
  Transmission Date: 20230722
  Serious: Yes (Life-Threatening)
  Sender: FDA-Public Use
  Company Number: None

PATIENT
  Age: 58 Year
  Sex: Male

DRUGS (1)
  1. MAVENCLAD [Suspect]
     Active Substance: CLADRIBINE
     Indication: Multiple sclerosis
     Dosage: THERAPY?FORM STRENGTH: 1.75 MG/KG
     Dates: start: 20230327, end: 20230424

REACTIONS (1)
  - Non-small cell lung cancer metastatic [Unknown]

NARRATIVE: CASE EVENT DATE: 20230327
